FAERS Safety Report 21759333 (Version 1)
Quarter: 2022Q4

REPORT INFORMATION
  Report Type: Spontaneous
  Country: DE (occurrence: DE)
  Receive Date: 20221221
  Receipt Date: 20221221
  Transmission Date: 20230112
  Serious: Yes (Other)
  Sender: FDA-Public Use
  Company Number: DE-ROCHE-3230742

PATIENT
  Sex: Female

DRUGS (12)
  1. BENDAMUSTINE HYDROCHLORIDE [Suspect]
     Active Substance: BENDAMUSTINE HYDROCHLORIDE
     Indication: Diffuse large B-cell lymphoma
     Dosage: (THIRD LINE WITH RITUXIMAB AND POLIVY)
     Route: 042
     Dates: start: 20200901, end: 20210101
  2. DOXORUBICIN HYDROCHLORIDE [Suspect]
     Active Substance: DOXORUBICIN HYDROCHLORIDE
     Indication: Diffuse large B-cell lymphoma
     Dosage: (FIRST LINE WITH RITUXIMAB),CHOP
     Route: 065
     Dates: start: 20180601, end: 20180901
  3. VINCRISTINE SULFATE [Suspect]
     Active Substance: VINCRISTINE SULFATE
     Indication: Diffuse large B-cell lymphoma
     Dosage: (FIRST LINE WITH RITUXIMAB),CHOP
     Route: 065
     Dates: start: 20180601, end: 20180901
  4. PREDNISONE [Suspect]
     Active Substance: PREDNISONE
     Indication: Diffuse large B-cell lymphoma
     Dosage: (FIRST LINE WITH RITUXIMAB),CHOP
     Route: 065
     Dates: start: 20180601, end: 20180901
  5. CYCLOPHOSPHAMIDE [Suspect]
     Active Substance: CYCLOPHOSPHAMIDE
     Indication: Diffuse large B-cell lymphoma
     Dosage: (FIRST LINE WITH RITUXIMAB),CHOP
     Route: 065
     Dates: start: 20180601, end: 20180901
  6. LENALIDOMIDE [Suspect]
     Active Substance: LENALIDOMIDE
     Indication: Diffuse large B-cell lymphoma
     Dosage: (FOURTH LINE WITH MABTHERA)
     Route: 065
     Dates: start: 20210801, end: 20220801
  7. GEMCITABINE HYDROCHLORIDE\OXALIPLATIN [Suspect]
     Active Substance: GEMCITABINE HYDROCHLORIDE\OXALIPLATIN
     Indication: Diffuse large B-cell lymphoma
     Dosage: (SECOND LINE WITH RITUXIMAB)
     Route: 065
     Dates: start: 20191001, end: 20191201
  8. POLIVY [Suspect]
     Active Substance: POLATUZUMAB VEDOTIN-PIIQ
     Indication: Diffuse large B-cell lymphoma
     Dosage: (THIRD LINE WITH RITUXIMAB AND BENDAMUSTINE  HYDROCHLORIDE)
     Route: 065
     Dates: start: 20200901, end: 20210101
  9. MABTHERA [Suspect]
     Active Substance: RITUXIMAB
     Indication: Diffuse large B-cell lymphoma
     Dosage: (FOURTH LINE WITH LENALIDOMIDE)
     Route: 058
     Dates: start: 20210801, end: 20220801
  10. RITUXIMAB [Suspect]
     Active Substance: RITUXIMAB
     Indication: Diffuse large B-cell lymphoma
     Dosage: (FIRST LINE WITH CHOP)
     Route: 042
     Dates: start: 20180601, end: 20180901
  11. RITUXIMAB [Suspect]
     Active Substance: RITUXIMAB
     Dosage: UNK UNK, UNKNOWN FREQ. (SECOND LINE WITH GEMOX)
     Route: 042
     Dates: start: 20191001, end: 20191201
  12. RITUXIMAB [Suspect]
     Active Substance: RITUXIMAB
     Dosage: UNK UNK, UNKNOWN FREQ. (THIRD LINE WITH POLATUZUMAB AND BENDAMUSTINE HYDROCHLORIDE)
     Route: 042
     Dates: start: 20200901, end: 20210101

REACTIONS (2)
  - Malignant neoplasm progression [Unknown]
  - Off label use [Unknown]
